FAERS Safety Report 25720048 (Version 2)
Quarter: 2025Q3

REPORT INFORMATION
  Report Type: Spontaneous
  Country: CA (occurrence: CA)
  Receive Date: 20250825
  Receipt Date: 20250829
  Transmission Date: 20251020
  Serious: Yes (Other)
  Sender: AMGEN
  Company Number: CA-AMGEN-CANSP2025166620

PATIENT
  Sex: Female

DRUGS (3)
  1. LUMAKRAS [Suspect]
     Active Substance: SOTORASIB
     Indication: Non-small cell lung cancer
     Dosage: 960 MILLIGRAM, QD
     Route: 048
     Dates: start: 202209, end: 202506
  2. LUMAKRAS [Suspect]
     Active Substance: SOTORASIB
     Indication: K-ras gene mutation
  3. PANITUMUMAB [Suspect]
     Active Substance: PANITUMUMAB
     Indication: Lung adenocarcinoma
     Route: 065
     Dates: start: 202209

REACTIONS (1)
  - Non-small cell lung cancer [Unknown]
